FAERS Safety Report 23255517 (Version 2)
Quarter: 2023Q4

REPORT INFORMATION
  Report Type: Spontaneous
  Country: CN (occurrence: CN)
  Receive Date: 20231203
  Receipt Date: 20231207
  Transmission Date: 20240109
  Serious: Yes (Life-Threatening, Hospitalization, Other)
  Sender: FDA-Public Use
  Company Number: CN-002147023-NVSC2023CN256173

PATIENT
  Age: 7 Year
  Sex: Male

DRUGS (1)
  1. CYCLOSPORINE [Suspect]
     Active Substance: CYCLOSPORINE
     Indication: Transplant rejection
     Dosage: 85 MG, Q12H
     Route: 048
     Dates: start: 20230308

REACTIONS (10)
  - Posterior reversible encephalopathy syndrome [Recovering/Resolving]
  - Delirium [Recovering/Resolving]
  - Seizure [Recovered/Resolved]
  - Vomiting [Unknown]
  - Depressed level of consciousness [Recovered/Resolved]
  - Tremor [Recovering/Resolving]
  - Excessive eye blinking [Unknown]
  - Muscle spasms [Unknown]
  - Eye pain [Unknown]
  - Intracranial pressure increased [Unknown]

NARRATIVE: CASE EVENT DATE: 20230515
